FAERS Safety Report 16488735 (Version 1)
Quarter: 2019Q2

REPORT INFORMATION
  Report Type: Report from Study
  Country: US (occurrence: US)
  Receive Date: 20190627
  Receipt Date: 20190627
  Transmission Date: 20190711
  Serious: Yes (Hospitalization)
  Sender: FDA-Public Use
  Company Number: US-ACTELION-A-NJ2019-186863

PATIENT
  Sex: Female

DRUGS (8)
  1. TRACLEER [Suspect]
     Active Substance: BOSENTAN
     Indication: MALIGNANT MELANOMA
     Dosage: 125 MG
     Route: 048
     Dates: start: 20190306
  2. POTASSIUM CHLORIDE. [Concomitant]
     Active Substance: POTASSIUM CHLORIDE
  3. METOLAZONE. [Concomitant]
     Active Substance: METOLAZONE
  4. METOPROLOL. [Concomitant]
     Active Substance: METOPROLOL
  5. ADEMPAS [Concomitant]
     Active Substance: RIOCIGUAT
  6. TRACLEER [Suspect]
     Active Substance: BOSENTAN
     Dosage: 62.5 MG
     Route: 048
  7. METHYLPRED [Concomitant]
     Active Substance: METHYLPREDNISOLONE
  8. AMIODARONE [Concomitant]
     Active Substance: AMIODARONE

REACTIONS (3)
  - Atrial fibrillation [Not Recovered/Not Resolved]
  - Malaise [Unknown]
  - Wheezing [Not Recovered/Not Resolved]
